FAERS Safety Report 24278081 (Version 1)
Quarter: 2024Q3

REPORT INFORMATION
  Report Type: Spontaneous
  Country: US (occurrence: US)
  Receive Date: 20240903
  Receipt Date: 20240903
  Transmission Date: 20241017
  Serious: Yes (Other)
  Sender: BAYER
  Company Number: US-BAYER-2024A124623

PATIENT
  Age: 45 Year
  Sex: Male

DRUGS (1)
  1. KOVALTRY [Suspect]
     Active Substance: ANTIHEMOPHILIC FACTOR, HUMAN RECOMBINANT
     Dosage: KOVALTRY 1177 UNITS

REACTIONS (2)
  - Haemorrhage [None]
  - Product dose omission issue [None]

NARRATIVE: CASE EVENT DATE: 20240822
